FAERS Safety Report 5113720-0 (Version None)
Quarter: 2006Q3

REPORT INFORMATION
  Report Type: 
  Country: None (occurrence: None)
  Receive Date: 20060920
  Receipt Date: 20060907
  Transmission Date: 20061208
  Serious: Yes (Death)
  Sender: FDA-Public Use
  Company Number: 2006110102

PATIENT
  Sex: Female

DRUGS (5)
  1. CLINDAMYCIN PHOSPHATE [Suspect]
     Indication: WOUND INFECTION
     Dosage: 1800 MG (600 MG, 3 IN 1 D), INTRAVENOUS
     Route: 042
  2. DIAZEPAM [Concomitant]
  3. HALOPERIDOL [Concomitant]
  4. AUGMENTIN '125' [Concomitant]
  5. METROGYL            (METRONIDAZOLE) [Concomitant]

REACTIONS (3)
  - AGGRESSION [None]
  - IRRITABILITY [None]
  - SUDDEN DEATH [None]
